FAERS Safety Report 6647031-9 (Version None)
Quarter: 2010Q1

REPORT INFORMATION
  Report Type: 
  Country: None (occurrence: None)
  Receive Date: 20100323
  Receipt Date: 20100317
  Transmission Date: 20100710
  Serious: No
  Sender: FDA-Public Use
  Company Number: A0845284A

PATIENT
  Sex: Female

DRUGS (1)
  1. LAMICTAL XR [Suspect]
     Dosage: 500MG PER DAY
     Route: 048

REACTIONS (5)
  - DIZZINESS [None]
  - NAUSEA [None]
  - PANIC ATTACK [None]
  - RASH [None]
  - VOMITING [None]
